FAERS Safety Report 7611611-4 (Version None)
Quarter: 2011Q3

REPORT INFORMATION
  Report Type: 
  Country: None (occurrence: None)
  Receive Date: 20110715
  Receipt Date: 20110708
  Transmission Date: 20111222
  Serious: Yes (Hospitalization)
  Sender: FDA-Public Use
  Company Number: IT-GLAXOSMITHKLINE-B0733191A

PATIENT
  Sex: Male

DRUGS (5)
  1. METFORAL [Concomitant]
  2. CARVEDILOL [Suspect]
     Indication: HYPERTENSION
     Route: 048
     Dates: start: 20070101, end: 20110625
  3. COUMADIN [Concomitant]
  4. MODURETIC 5-50 [Concomitant]
  5. LANOXIN [Suspect]
     Indication: ATRIAL FIBRILLATION
     Dosage: .125MG PER DAY
     Route: 048
     Dates: start: 20070101, end: 20110623

REACTIONS (2)
  - ASTHENIA [None]
  - BRADYARRHYTHMIA [None]
